FAERS Safety Report 9014641 (Version 1)
Quarter: 2013Q1

REPORT INFORMATION
  Report Type: Spontaneous
  Country: FR (occurrence: FR)
  Receive Date: 20130115
  Receipt Date: 20130115
  Transmission Date: 20140127
  Serious: Yes (Other)
  Sender: FDA-Public Use
  Company Number: FR-TEVA-380101ISR

PATIENT
  Age: 81 Year
  Sex: Female
  Weight: 60 kg

DRUGS (7)
  1. IRINOTECAN [Suspect]
     Indication: COLORECTAL CANCER METASTATIC
     Dosage: 12 COURSES
     Route: 042
     Dates: start: 2012, end: 20121129
  2. LEVOFOLINATE CALCIUM [Suspect]
     Indication: COLORECTAL CANCER METASTATIC
     Dosage: 12 COURSES
     Route: 042
     Dates: start: 2012, end: 20121129
  3. 5 FLUOROURACIL [Concomitant]
     Indication: COLORECTAL CANCER METASTATIC
     Route: 040
     Dates: start: 2012
  4. 5 FLUOROURACIL TEVA [Concomitant]
     Dosage: 100 MILLIGRAM DAILY; OVER 24 HOURS
     Route: 041
     Dates: start: 2012
  5. ZOPHREN [Concomitant]
     Indication: PREMEDICATION
  6. SOLUMEDROL [Concomitant]
     Indication: PREMEDICATION
  7. ATROPINE [Concomitant]
     Indication: PREMEDICATION

REACTIONS (2)
  - Nausea [Recovered/Resolved]
  - Sense of oppression [Recovered/Resolved]
